FAERS Safety Report 9431875 (Version 1)
Quarter: 2013Q3

REPORT INFORMATION
  Report Type: Spontaneous
  Country: US (occurrence: US)
  Receive Date: 20130731
  Receipt Date: 20130731
  Transmission Date: 20140515
  Serious: Yes (Other)
  Sender: FDA-Public Use
  Company Number: PHEH2013US015650

PATIENT
  Age: 56 Year
  Sex: Female

DRUGS (1)
  1. GILENYA [Suspect]

REACTIONS (3)
  - Retinal haemorrhage [Not Recovered/Not Resolved]
  - Retinal oedema [Not Recovered/Not Resolved]
  - Visual impairment [Unknown]
